FAERS Safety Report 8118360-7 (Version None)
Quarter: 2011Q4

REPORT INFORMATION
  Report Type: 
  Country: None (occurrence: None)
  Receive Date: 20111227
  Receipt Date: 20111115
  Transmission Date: 20120403
  Serious: No
  Sender: FDA-Public Use
  Company Number: PHEH2011US06731

PATIENT
  Age: 52 Year
  Sex: Female
  Weight: 72.6 kg

DRUGS (4)
  1. BONIVA (IBANDRONATE SODIUM) 11/18/2008 TO UNK [Concomitant]
  2. GILENYA [Suspect]
     Indication: MULTIPLE SCLEROSIS
     Dosage: 0.5 MG, QD, ORAL
     Route: 048
     Dates: start: 20111004
  3. PROVIGIL (MODAFINIL) 06/27/2008 TO UNK [Concomitant]
  4. LEXAPRO (ESCITALOPRAM OXALATE) 11/22/2008 TO UNK [Concomitant]

REACTIONS (4)
  - INSOMNIA [None]
  - NAUSEA [None]
  - VISION BLURRED [None]
  - DIZZINESS [None]
